FAERS Safety Report 8908292 (Version 1)
Quarter: 2012Q4

REPORT INFORMATION
  Report Type: 
  Country: US (occurrence: US)
  Receive Date: 20121114
  Receipt Date: 20121114
  Transmission Date: 20130627
  Serious: Yes (Other)
  Sender: FDA-Public Use
  Company Number: PHEH2012US022305

PATIENT
  Sex: Female

DRUGS (7)
  1. VIVELLE DOT [Suspect]
     Dosage: 0.05 mg, twice week
     Route: 062
  2. DIGESTIVE ENZYMES [Concomitant]
  3. ARMOUR DISACATED [Concomitant]
     Dosage: 60 mg,
  4. CO Q 10 [Concomitant]
  5. MAGNESIUM [Concomitant]
  6. OMEGA 3 [Concomitant]
  7. B-12 [Concomitant]

REACTIONS (3)
  - Fall [Unknown]
  - Hip fracture [Unknown]
  - Wrong technique in drug usage process [Unknown]
